FAERS Safety Report 5815146-0 (Version None)
Quarter: 2008Q3

REPORT INFORMATION
  Report Type: 
  Country: None (occurrence: None)
  Receive Date: 20080718
  Receipt Date: 20080708
  Transmission Date: 20090109
  Serious: Yes (Death, Other)
  Sender: FDA-Public Use
  Company Number: CA-JNJFOC-20080402890

PATIENT
  Sex: Male
  Weight: 65 kg

DRUGS (9)
  1. REMICADE [Suspect]
     Indication: CROHN'S DISEASE
     Route: 042
  2. HUMIRA [Suspect]
     Indication: CROHN'S DISEASE
     Route: 058
  3. PENTASA [Concomitant]
     Indication: CROHN'S DISEASE
     Route: 048
  4. CIPROFLOXACIN [Concomitant]
     Indication: CROHN'S DISEASE
     Route: 048
  5. METRONIDAZOLE HCL [Concomitant]
     Indication: CROHN'S DISEASE
     Route: 048
  6. AZATHIOPRINE [Concomitant]
     Indication: CROHN'S DISEASE
     Route: 048
  7. PREDNISONE TAB [Concomitant]
     Indication: CROHN'S DISEASE
     Route: 048
  8. CORTIFOAM AEROSOL [Concomitant]
     Indication: ANORECTAL DISCOMFORT
     Route: 054
  9. PERCOCET [Concomitant]
     Route: 048

REACTIONS (4)
  - ADENOCARCINOMA [None]
  - ANAL ABSCESS [None]
  - DRUG INEFFECTIVE [None]
  - NEOPLASM PROGRESSION [None]
